FAERS Safety Report 9049621 (Version 1)
Quarter: 2013Q1

REPORT INFORMATION
  Report Type: Spontaneous
  Country: GB (occurrence: GB)
  Receive Date: 20130205
  Receipt Date: 20130205
  Transmission Date: 20140127
  Serious: Yes (Disabling)
  Sender: FDA-Public Use
  Company Number: GB-WATSON-2013-01501

PATIENT
  Age: 28 Year
  Sex: Female

DRUGS (5)
  1. MORPHINE SULFATE (UNKNOWN) [Suspect]
     Indication: SPINAL ANAESTHESIA
     Dosage: 100 MCG, UNKNOWN
     Route: 065
  2. BUPIVACAINE [Suspect]
     Indication: SPINAL ANAESTHESIA
     Dosage: 2.2 ML, UNKNOWN
     Route: 065
  3. FENTANYL [Concomitant]
     Indication: ANALGESIC THERAPY
     Dosage: 2 MCG/ML, UNKNOWN
     Route: 065
  4. LEVOBUPIVACAINE [Concomitant]
     Indication: ANALGESIC THERAPY
     Dosage: UNK, UNKNOWN
     Route: 065
  5. SYNTOCINON [Concomitant]
     Indication: UTERINE HYPERTONUS
     Dosage: UNK, UNKNOWN
     Route: 065

REACTIONS (2)
  - Complex regional pain syndrome [Recovered/Resolved]
  - Maternal exposure during pregnancy [Unknown]
